FAERS Safety Report 9358283 (Version 2)
Quarter: 2013Q3

REPORT INFORMATION
  Report Type: Spontaneous
  Country: JP (occurrence: JP)
  Receive Date: 20130620
  Receipt Date: 20130708
  Transmission Date: 20140515
  Serious: Yes (Hospitalization)
  Sender: FDA-Public Use
  Company Number: JP-JNJFOC-20130609087

PATIENT
  Age: 69 Year
  Sex: Male

DRUGS (4)
  1. RISPERDAL [Suspect]
     Indication: DELIRIUM
     Dosage: 1-1.5MG
     Route: 048
     Dates: start: 20130521
  2. SEROQUEL [Concomitant]
     Route: 048
  3. DIOVAN [Concomitant]
     Route: 048
  4. LASIX [Concomitant]
     Route: 048

REACTIONS (2)
  - Depressed level of consciousness [Recovering/Resolving]
  - Leukoencephalopathy [Recovering/Resolving]
